FAERS Safety Report 7880683-4 (Version None)
Quarter: 2011Q4

REPORT INFORMATION
  Report Type: 
  Country: None (occurrence: None)
  Receive Date: 20111101
  Receipt Date: 20111028
  Transmission Date: 20120403
  Serious: Yes (Death, Other)
  Sender: FDA-Public Use
  Company Number: US-AMGEN-QUU431236

PATIENT
  Age: 63 Year
  Sex: Female
  Weight: 52.608 kg

DRUGS (17)
  1. HYDREA [Concomitant]
     Indication: MYELODYSPLASTIC SYNDROME
     Dosage: 1000 MG, UNK
  2. VICODIN [Concomitant]
     Dosage: 750 MG, PRN
     Route: 048
  3. CALCIUM + VITAMIN D                /01483701/ [Concomitant]
     Dosage: 600 MG, QD
     Route: 048
  4. NPLATE [Suspect]
     Indication: IDIOPATHIC THROMBOCYTOPENIC PURPURA
     Dosage: 115 MUG, QWK
     Route: 058
     Dates: start: 20091104, end: 20110812
  5. ALLOPURINOL [Concomitant]
     Dosage: 300 MG, QD
     Route: 048
     Dates: start: 20101201
  6. LASIX [Concomitant]
     Dosage: 20 MG, BID
     Route: 048
  7. ATENOLOL [Concomitant]
     Dosage: 100 MG, UNK
     Route: 048
  8. ARANESP [Concomitant]
     Dosage: 500 MUG, Q3WK
     Route: 058
     Dates: start: 20100414
  9. ALBUTEROL [Concomitant]
     Dosage: 3 ML, PRN
     Route: 055
  10. LENALIDOMIDE [Concomitant]
     Dosage: 5 MG, QOD
     Route: 048
     Dates: start: 20091214
  11. M.V.I. [Concomitant]
     Dosage: UNK UNK, QD
     Route: 048
  12. XANAX [Concomitant]
  13. RADIATION THERAPY [Concomitant]
     Dosage: UNK UNK, 3 TIMES/WK
     Dates: start: 20100101
  14. CORTICOSTEROID NOS [Concomitant]
  15. PREDNISONE [Concomitant]
     Dosage: 5 MG, QD
     Route: 048
     Dates: start: 20100702
  16. DIOVAN [Concomitant]
  17. KLOR-CON [Concomitant]
     Dosage: 20 MEQ, UNK
     Route: 048

REACTIONS (27)
  - MYELODYSPLASTIC SYNDROME [None]
  - DYSPNOEA [None]
  - DECREASED APPETITE [None]
  - EXTRAMEDULLARY HAEMOPOIESIS [None]
  - SPLENIC INFARCTION [None]
  - BILIARY DILATATION [None]
  - HAEMORRHAGE [None]
  - DRUG INEFFECTIVE [None]
  - ABDOMINAL DISTENSION [None]
  - MALAISE [None]
  - CARDIAC FAILURE CONGESTIVE [None]
  - THROMBOCYTOPENIA [None]
  - PYREXIA [None]
  - ABDOMINAL PAIN [None]
  - OEDEMA [None]
  - FATIGUE [None]
  - PLEURAL EFFUSION [None]
  - DIVERTICULUM INTESTINAL [None]
  - THERAPEUTIC RESPONSE DECREASED [None]
  - HAEMATOLOGICAL MALIGNANCY [None]
  - URTICARIA [None]
  - LYMPHADENOPATHY [None]
  - WEIGHT DECREASED [None]
  - SPLENOMEGALY [None]
  - NEPHROLITHIASIS [None]
  - ATELECTASIS [None]
  - SCAN ADRENAL GLAND ABNORMAL [None]
